FAERS Safety Report 6764084-8 (Version None)
Quarter: 2010Q2

REPORT INFORMATION
  Report Type: 
  Country: None (occurrence: None)
  Receive Date: 20100608
  Receipt Date: 20100526
  Transmission Date: 20101027
  Serious: Yes (Hospitalization, Disabling)
  Sender: FDA-Public Use
  Company Number: 230121K09IRL

PATIENT
  Age: 42 Year
  Sex: Female

DRUGS (15)
  1. REBIF [Suspect]
     Indication: MULTIPLE SCLEROSIS
     Dosage: 44 MCG, SUBCUTANEOUS
     Route: 058
     Dates: start: 20000417, end: 20090701
  2. REBIF [Suspect]
     Indication: MULTIPLE SCLEROSIS
     Dosage: 44 MCG, SUBCUTANEOUS
     Route: 058
     Dates: start: 20090101, end: 20090802
  3. ZANAFLEX [Concomitant]
  4. LACTULOSE [Concomitant]
  5. CALCICHEW D3 (LEKOVIT CA) [Concomitant]
  6. TOLTERODINE TARTRATE [Concomitant]
  7. BACLOFEN [Concomitant]
  8. FLUOXETINE [Concomitant]
  9. AMITRIPTYLINE HYDROCHLORIDE [Concomitant]
  10. GALFER (FERROUS FUMARATE) [Concomitant]
  11. ATORVASTATIN CALCIUM [Concomitant]
  12. CARBAMAZEPINE [Concomitant]
  13. LANSOPRAZOLE [Concomitant]
  14. PREGABALIN [Concomitant]
  15. FYBOGEL      (PLANTAGO OVATA) [Concomitant]

REACTIONS (4)
  - INFECTION [None]
  - MULTIPLE SCLEROSIS RELAPSE [None]
  - STRESS [None]
  - UNEVALUABLE EVENT [None]
